FAERS Safety Report 23333260 (Version 1)
Quarter: 2023Q4

REPORT INFORMATION
  Report Type: Spontaneous
  Country: US (occurrence: US)
  Receive Date: 20231222
  Receipt Date: 20231222
  Transmission Date: 20240109
  Serious: Yes (Death)
  Sender: FDA-Public Use
  Company Number: US-Covis Pharma GmbH-2023COV01979

PATIENT
  Age: 66 Year
  Sex: Female

DRUGS (4)
  1. RILUZOLE [Suspect]
     Active Substance: RILUZOLE
     Route: 048
  2. AMITRIPTYLINE [Suspect]
     Active Substance: AMITRIPTYLINE
  3. AMLODIPINE [Suspect]
     Active Substance: AMLODIPINE BESYLATE
  4. TEMAZEPAM [Suspect]
     Active Substance: TEMAZEPAM

REACTIONS (1)
  - Death [Fatal]
